FAERS Safety Report 8996993 (Version 1)
Quarter: 2012Q4

REPORT INFORMATION
  Report Type: Spontaneous
  Country: BE (occurrence: None)
  Receive Date: 20121220
  Receipt Date: 20121220
  Transmission Date: 20130627
  Serious: Yes (Other)
  Sender: FDA-Public Use
  Company Number: 2012AP004175

PATIENT
  Age: 63 Year
  Sex: Female

DRUGS (6)
  1. LANSOPRAZOLE [Suspect]
     Indication: DRUG USE FOR UNKNOWN INDICATION
     Route: 048
  2. PANTOPRAZOLE (PANTOPRAZOLE) [Suspect]
     Indication: DRUG USE FOR UNKNOWN INDICATION
     Dosage: AM
     Route: 048
  3. OMEPRAZOLE (OMEPRAZOLE) [Suspect]
     Indication: GASTROOESOPHAGEAL REFLUX
  4. ANTIBIOTICS (ANTIBIOTICS) [Concomitant]
  5. CORTICOSTEROIDS (CORTICOSTEROIDS) [Concomitant]
  6. PIMECROLIMUS (PIMECROLIMUS) [Concomitant]

REACTIONS (6)
  - Prurigo [None]
  - Type IV hypersensitivity reaction [None]
  - Dry mouth [None]
  - Dizziness [None]
  - Cross sensitivity reaction [None]
  - Scar [None]
